FAERS Safety Report 7952645-X (Version None)
Quarter: 2011Q4

REPORT INFORMATION
  Report Type: 
  Country: None (occurrence: None)
  Receive Date: 20111201
  Receipt Date: 20111129
  Transmission Date: 20120403
  Serious: No
  Sender: FDA-Public Use
  Company Number: US-PFIZER INC-2011291106

PATIENT
  Age: 58 Year
  Sex: Female

DRUGS (1)
  1. XANAX [Suspect]
     Indication: DEPRESSION
     Dosage: UNK

REACTIONS (1)
  - DRUG INEFFECTIVE [None]
